FAERS Safety Report 16753572 (Version 7)
Quarter: 2021Q1

REPORT INFORMATION
  Report Type: Report from Study
  Country: PL (occurrence: PL)
  Receive Date: 20190829
  Receipt Date: 20210303
  Transmission Date: 20210419
  Serious: Yes (Death)
  Sender: FDA-Public Use
  Company Number: PL-ROCHE-2392976

PATIENT
  Age: 62 Year
  Sex: Female
  Weight: 108 kg

DRUGS (37)
  1. DIURED [Concomitant]
     Indication: HYPERTENSION
     Route: 048
     Dates: start: 1999
  2. ALBUMIN [Concomitant]
     Active Substance: ALBUMIN HUMAN
     Indication: OEDEMA PERIPHERAL
     Route: 042
     Dates: start: 20190722, end: 20190725
  3. RITUXIMAB. [Suspect]
     Active Substance: RITUXIMAB
     Indication: DIFFUSE LARGE B-CELL LYMPHOMA
     Dosage: MOST RECENT DOSE (855 MG) ON 11/JUN/2019
     Route: 042
     Dates: start: 20190410
  4. ACICLOVIRUM [Concomitant]
     Indication: INFECTION PROPHYLAXIS
     Route: 048
     Dates: start: 20190410
  5. BERODUAL [Concomitant]
     Active Substance: FENOTEROL HYDROBROMIDE\IPRATROPIUM BROMIDE
     Indication: PNEUMONIA
     Dates: start: 20190726, end: 20190729
  6. KETONAL (POLAND) [Concomitant]
     Indication: PNEUMONIA
     Route: 042
     Dates: start: 20190724, end: 20190730
  7. POLATUZUMAB VEDOTIN. [Suspect]
     Active Substance: POLATUZUMAB VEDOTIN
     Indication: DIFFUSE LARGE B-CELL LYMPHOMA
     Dosage: ON 11/JUN/2019: DATE OF MOST RECENT DOSE OF BLINDED POLATUZUMAB VEDOTIN (194.4 MG) PRIOR TO SAE ONSE
     Route: 042
     Dates: start: 20190411
  8. PRESTARIUM [PERINDOPRIL ARGININE] [Concomitant]
     Active Substance: PERINDOPRIL ARGININE
     Indication: HYPERTENSION
     Route: 048
     Dates: start: 1999
  9. ALLOPURINOL. [Concomitant]
     Active Substance: ALLOPURINOL
     Indication: HYPERURICAEMIA
     Route: 048
     Dates: start: 20190722, end: 20190724
  10. LACTULOSE. [Concomitant]
     Active Substance: LACTULOSE
     Indication: CONSTIPATION
     Route: 048
     Dates: start: 20190726, end: 20190727
  11. ALBUMIN [Concomitant]
     Active Substance: ALBUMIN HUMAN
     Route: 042
     Dates: start: 20190726, end: 20190729
  12. AMLODIPINUM [Concomitant]
     Indication: OEDEMA PERIPHERAL
     Route: 048
     Dates: start: 20190731
  13. DOXORUBICIN [Suspect]
     Active Substance: DOXORUBICIN
     Indication: DIFFUSE LARGE B-CELL LYMPHOMA
     Dosage: MOST RECENT DOSE (114 MG) ON 11/JUN/2019
     Route: 042
     Dates: start: 20190411
  14. FUROSEMIDUM [Concomitant]
     Active Substance: FUROSEMIDE
     Dosage: 3 AMPULE
     Route: 042
     Dates: start: 20190726, end: 20190726
  15. FUROSEMIDUM [Concomitant]
     Active Substance: FUROSEMIDE
     Dosage: DOSE: 5 AMPULE
     Route: 042
     Dates: start: 20190723, end: 20190725
  16. ALLOPURINOLUM [Concomitant]
     Route: 048
     Dates: start: 20190731
  17. MILURIT [Concomitant]
     Active Substance: ALLOPURINOL
     Indication: OEDEMA
     Route: 048
     Dates: start: 20190722, end: 20190723
  18. PREDNISONE. [Suspect]
     Active Substance: PREDNISONE
     Indication: DIFFUSE LARGE B-CELL LYMPHOMA
     Dosage: MOST RECENT DOSE (100 MG) ON 15/JUN/2019
     Route: 048
     Dates: start: 20190410
  19. PRADAXA [Concomitant]
     Active Substance: DABIGATRAN ETEXILATE MESYLATE
     Indication: ATRIAL FIBRILLATION
     Route: 048
     Dates: start: 2014
  20. METOCLOPRAMIDUM [Concomitant]
     Indication: CONSTIPATION
     Route: 042
     Dates: start: 20190724, end: 20190725
  21. HYDROXYZINUM [Concomitant]
     Active Substance: HYDROXYZINE HYDROCHLORIDE
     Indication: INSOMNIA
     Route: 048
     Dates: start: 20190722, end: 20190724
  22. LORAZEPAM. [Concomitant]
     Active Substance: LORAZEPAM
     Indication: INSOMNIA
     Route: 048
     Dates: start: 20190723, end: 20190731
  23. ALLOPURINOLUM [Concomitant]
     Indication: OEDEMA
     Route: 048
     Dates: start: 20190722, end: 20190722
  24. ALLOPURINOLUM [Concomitant]
     Indication: PROPHYLAXIS
     Route: 048
     Dates: start: 20190724, end: 20190725
  25. NACL [Concomitant]
     Active Substance: SODIUM CHLORIDE
     Indication: OEDEMA PERIPHERAL
     Route: 042
     Dates: start: 20190722, end: 20190731
  26. BETO ZK [Concomitant]
     Active Substance: METOPROLOL SUCCINATE
     Indication: ATRIAL FIBRILLATION
     Route: 048
     Dates: start: 2014
  27. BISEPTOL [Concomitant]
     Active Substance: SULFAMETHOXAZOLE\TRIMETHOPRIM
     Indication: PNEUMONIA
     Dosage: DATE OF TREATMENT: 01?AUG?2019
     Route: 048
     Dates: start: 20190801
  28. SPIRONOL [Concomitant]
     Active Substance: SPIRONOLACTONE
     Indication: OEDEMA PERIPHERAL
     Route: 048
     Dates: start: 20190605, end: 20190725
  29. CLEXANE [Concomitant]
     Active Substance: ENOXAPARIN SODIUM
     Indication: ATRIAL FIBRILLATION
     Route: 058
     Dates: start: 20190605
  30. GLYCEROL [Concomitant]
     Active Substance: GLYCERIN
     Indication: CONSTIPATION
     Route: 054
     Dates: start: 20190727, end: 20190729
  31. BERODUAL [Concomitant]
     Active Substance: FENOTEROL HYDROBROMIDE\IPRATROPIUM BROMIDE
     Dates: start: 20190730, end: 20190731
  32. MORPHINE [Concomitant]
     Active Substance: MORPHINE
     Indication: OEDEMA PERIPHERAL
     Route: 058
     Dates: start: 20190726, end: 20190729
  33. PLACEBO [Suspect]
     Active Substance: UNSPECIFIED INGREDIENT
     Indication: DIFFUSE LARGE B-CELL LYMPHOMA
     Route: 042
     Dates: start: 20190411
  34. CYCLOPHOSPHAMIDE. [Suspect]
     Active Substance: CYCLOPHOSPHAMIDE
     Indication: DIFFUSE LARGE B-CELL LYMPHOMA
     Dosage: MOST RECENT DOSE (1710 MG) ON 11/JUN/2019
     Route: 042
     Dates: start: 20190411
  35. BISEPTOL [Concomitant]
     Active Substance: SULFAMETHOXAZOLE\TRIMETHOPRIM
     Indication: INFECTION PROPHYLAXIS
     Dosage: DATE OF TREATMENT: 01?AUG?2019
     Route: 047
     Dates: start: 20190726, end: 20190731
  36. FUROSEMIDUM [Concomitant]
     Active Substance: FUROSEMIDE
     Indication: OEDEMA PERIPHERAL
     Route: 048
     Dates: start: 20190605
  37. FUROSEMIDUM [Concomitant]
     Active Substance: FUROSEMIDE
     Route: 048
     Dates: start: 20190731

REACTIONS (1)
  - Death [Fatal]

NARRATIVE: CASE EVENT DATE: 20190820
